FAERS Safety Report 7219382-0 (Version None)
Quarter: 2011Q1

REPORT INFORMATION
  Report Type: 
  Country: None (occurrence: None)
  Receive Date: 20110111
  Receipt Date: 20110107
  Transmission Date: 20110831
  Serious: No
  Sender: FDA-Public Use
  Company Number: US-PFIZER INC-2011004989

PATIENT
  Sex: Male
  Weight: 108.8 kg

DRUGS (3)
  1. NORVASC [Suspect]
     Indication: HYPERTENSION
     Dosage: 2.5 MG, DAILY
     Route: 048
     Dates: start: 20060101
  2. CADUET [Suspect]
     Indication: BLOOD CHOLESTEROL INCREASED
  3. CADUET [Suspect]
     Indication: HYPERTENSION
     Dosage: 10/20 MG, DAILY
     Route: 048
     Dates: start: 20070101

REACTIONS (2)
  - PRURITUS [None]
  - DEPRESSION [None]
